FAERS Safety Report 7052574-2 (Version None)
Quarter: 2010Q4

REPORT INFORMATION
  Report Type: 
  Country: None (occurrence: None)
  Receive Date: 20101019
  Receipt Date: 20101013
  Transmission Date: 20110411
  Serious: Yes (Other)
  Sender: FDA-Public Use
  Company Number: US-PFIZER INC-2010130080

PATIENT
  Sex: Female

DRUGS (1)
  1. CHANTIX [Suspect]
     Dosage: UNK

REACTIONS (6)
  - AGGRESSION [None]
  - ANKLE FRACTURE [None]
  - HALLUCINATION [None]
  - HEARING IMPAIRED [None]
  - IMPAIRED DRIVING ABILITY [None]
  - VISUAL IMPAIRMENT [None]
